FAERS Safety Report 7720224-5 (Version None)
Quarter: 2011Q3

REPORT INFORMATION
  Report Type: 
  Country: None (occurrence: None)
  Receive Date: 20110831
  Receipt Date: 20110825
  Transmission Date: 20111222
  Serious: Yes (Other)
  Sender: FDA-Public Use
  Company Number: JP-PFIZER INC-2011196756

PATIENT
  Age: 56 Year
  Sex: Female

DRUGS (5)
  1. VALPROATE SODIUM [Suspect]
     Dosage: 800 MG/DAY
     Route: 048
     Dates: end: 20110822
  2. LYRICA [Suspect]
     Indication: BACK PAIN
     Dosage: 150 MG/DAY
     Route: 048
     Dates: start: 20110622, end: 20110822
  3. PROMAZINE HYDROCHLORIDE [Suspect]
     Dosage: UNK
     Route: 048
     Dates: end: 20110822
  4. LITHIUM CARBONATE [Suspect]
     Dosage: 400 MG/DAY
     Route: 048
     Dates: end: 20110822
  5. FLUNITRAZEPAM [Suspect]
     Dosage: 2 MG/DAY
     Route: 048
     Dates: end: 20110822

REACTIONS (5)
  - SOMNOLENCE [None]
  - DIZZINESS [None]
  - ASTHENIA [None]
  - PNEUMONIA [None]
  - RENAL IMPAIRMENT [None]
